FAERS Safety Report 14420466 (Version 1)
Quarter: 2018Q1

REPORT INFORMATION
  Report Type: Report from Study
  Country: DE (occurrence: DE)
  Receive Date: 20180122
  Receipt Date: 20180122
  Transmission Date: 20180509
  Serious: Yes (Hospitalization)
  Sender: FDA-Public Use
  Company Number: PHHO2013DE011804

PATIENT

DRUGS (5)
  1. PANTOZOL [Concomitant]
     Active Substance: PANTOPRAZOLE SODIUM
     Indication: PROPHYLAXIS
     Dosage: 40 MG, QD
     Route: 048
  2. PLACEBO [Suspect]
     Active Substance: UNSPECIFIED INGREDIENT
     Indication: GASTRIC CANCER
     Dosage: DAILY D1-D28
     Route: 048
     Dates: start: 20130812, end: 20130906
  3. COMPARATOR PACLITAXEL [Suspect]
     Active Substance: PACLITAXEL
     Indication: GASTRIC CANCER
     Dosage: 80 MG/M2, ON DAY 1, DAY 8 AND DAY 15
     Route: 042
     Dates: start: 20130812, end: 20130826
  4. COMPARATOR PACLITAXEL [Suspect]
     Active Substance: PACLITAXEL
     Dosage: 80 MG/M2, ON DAY 1, DAY 8 AND DAY 15
     Route: 042
     Dates: start: 20130910
  5. PLACEBO [Suspect]
     Active Substance: UNSPECIFIED INGREDIENT
     Dosage: DAILY D1-D28
     Route: 048
     Dates: start: 20130911

REACTIONS (5)
  - General physical health deterioration [Recovered/Resolved]
  - Nausea [Recovered/Resolved]
  - Dehydration [Recovered/Resolved]
  - Vomiting [Recovered/Resolved]
  - Sinus tachycardia [Recovered/Resolved]

NARRATIVE: CASE EVENT DATE: 20130907
